FAERS Safety Report 9331232 (Version 3)
Quarter: 2013Q3

REPORT INFORMATION
  Report Type: Spontaneous
  Country: IT (occurrence: IT)
  Receive Date: 20130605
  Receipt Date: 20130710
  Transmission Date: 20140515
  Serious: Yes (Death, Other)
  Sender: FDA-Public Use
  Company Number: IT-TEVA-408268ISR

PATIENT
  Age: 59 Year
  Sex: Female

DRUGS (4)
  1. ETOPOSIDE TEVA [Suspect]
     Indication: NON-HODGKIN^S LYMPHOMA
     Dosage: 300 MILLIGRAM DAILY;
     Route: 042
     Dates: start: 20120708, end: 20120711
  2. MUPHORAN [Suspect]
     Indication: NON-HODGKIN^S LYMPHOMA
     Dosage: 230 MILLIGRAM DAILY;
     Route: 042
     Dates: start: 20120706, end: 20120707
  3. CITARABINA HOSPIRA [Suspect]
     Indication: NON-HODGKIN^S LYMPHOMA
     Dosage: 600 MILLIGRAM DAILY;
     Route: 042
     Dates: start: 20120708, end: 20120711
  4. ALKERAN [Suspect]
     Indication: NON-HODGKIN^S LYMPHOMA
     Dosage: 210 MILLIGRAM DAILY; POWDER AND SOLVENT FOR INJECTABLE SOLUTION
     Route: 042
     Dates: start: 20120712, end: 20120712

REACTIONS (5)
  - Febrile neutropenia [Fatal]
  - Septic shock [Fatal]
  - Colitis [Unknown]
  - Pseudomonas test positive [None]
  - Blood culture positive [None]
